FAERS Safety Report 4687430-8 (Version None)
Quarter: 2005Q2

REPORT INFORMATION
  Report Type: 
  Country: None (occurrence: None)
  Receive Date: 20050609
  Receipt Date: 20050609
  Transmission Date: 20051028
  Serious: Yes (Hospitalization)
  Sender: FDA-Public Use
  Company Number: None

PATIENT
  Age: 53 Year
  Sex: Female
  Weight: 88.9 kg

DRUGS (8)
  1. ARSENIC TRIOXIDE 22 MG [Suspect]
     Indication: MULTIPLE MYELOMA
     Dosage: 22 MG QD X 5 DAYS INTRAVENOU
     Route: 042
     Dates: start: 20040510, end: 20040518
  2. LEVOTHYROXINE SODIUM [Concomitant]
  3. SERTRALINE HCL [Concomitant]
  4. ESTROGEN [Concomitant]
  5. FEXOFENADINE HCL [Concomitant]
  6. ACETAMINOPHEN [Concomitant]
  7. PROPANOLOL SR [Concomitant]
  8. AMBIEN [Concomitant]

REACTIONS (9)
  - CATHETER RELATED INFECTION [None]
  - CHILLS [None]
  - DIARRHOEA [None]
  - DIZZINESS [None]
  - HAEMOGLOBIN DECREASED [None]
  - HERPES SIMPLEX [None]
  - PLATELET COUNT DECREASED [None]
  - PYREXIA [None]
  - STAPHYLOCOCCAL INFECTION [None]
